FAERS Safety Report 10170923 (Version 4)
Quarter: 2015Q2

REPORT INFORMATION
  Report Type: Report from Study
  Country: US (occurrence: None)
  Receive Date: 20140512
  Receipt Date: 20150519
  Transmission Date: 20150821
  Serious: Yes (Hospitalization)
  Sender: FDA-Public Use
  Company Number: 2014SGN00484

PATIENT
  Age: 73 Year
  Sex: Male
  Weight: 82.9 kg

DRUGS (10)
  1. FERROUS SULFATE [Concomitant]
     Active Substance: FERROUS SULFATE\FERROUS SULFATE, DRIED
  2. ALLOPURINOL (ALLOPURINOL) [Concomitant]
     Active Substance: ALLOPURINOL
  3. PREDNISONE (PREDNISONE) [Concomitant]
     Active Substance: PREDNISONE
  4. CLONAZEPAM (CLONAZEPAM) (CLONAZEPAM) [Concomitant]
     Active Substance: CLONAZEPAM
  5. DAPSONE (DAPSONE) [Concomitant]
  6. OMEPRAZOLE (OMEPRAZOLE) [Concomitant]
     Active Substance: OMEPRAZOLE
  7. KEPRRA (LEVETIRACETAM) [Concomitant]
  8. BRENTUXIMAB VEDOTIN (BRENTUXIMAB VEDOTIN) INJECTION [Suspect]
     Active Substance: BRENTUXIMAB VEDOTIN
     Indication: HODGKIN^S DISEASE
     Dosage: 1.8 MG/KG, Q21D, INTRAVENOUS
     Route: 042
     Dates: start: 20140304, end: 20140327
  9. RIVAROXABAN (RIVAROXABAN) [Concomitant]
  10. PHENYTOIN (PHENYTOIN) [Concomitant]
     Active Substance: PHENYTOIN

REACTIONS (29)
  - Aspartate aminotransferase increased [None]
  - Jaundice [None]
  - Biliary tract disorder [None]
  - Activated partial thromboplastin time prolonged [None]
  - Malignant splenic neoplasm [None]
  - Coagulation factor increased [None]
  - Hepatomegaly [None]
  - Hepatic steatosis [None]
  - Hyperbilirubinaemia [None]
  - Oedema [None]
  - Decreased appetite [None]
  - Chromaturia [None]
  - Abnormal faeces [None]
  - International normalised ratio increased [None]
  - Hepatic lesion [None]
  - Abdominal pain [None]
  - Bile duct obstruction [None]
  - Alanine aminotransferase increased [None]
  - Pancreatitis [None]
  - Haemangioma of liver [None]
  - Liver function test abnormal [None]
  - Liver disorder [None]
  - Splenomegaly [None]
  - Superficial vein prominence [None]
  - Portal vein dilatation [None]
  - Blood alkaline phosphatase increased [None]
  - Hepatocellular injury [None]
  - Splenic lesion [None]
  - Cholestasis [None]

NARRATIVE: CASE EVENT DATE: 20140424
